FAERS Safety Report 7987567 (Version 5)
Quarter: 2012Q4

REPORT INFORMATION
  Report Type: 
  Country: US (occurrence: US)
  Receive Date: 20110613
  Receipt Date: 20121112
  Transmission Date: 20130627
  Serious: Yes (Other)
  Sender: FDA-Public Use
  Company Number: US-ASTRAZENECA-2011SE00167

PATIENT
  Age: 45 Year
  Sex: Female
  Weight: 80.7 kg

DRUGS (11)
  1. SEROQUEL XR [Suspect]
     Indication: BIPOLAR DISORDER
     Route: 048
  2. SEROQUEL XR [Suspect]
     Indication: MAJOR DEPRESSION
     Route: 048
  3. SEROQUEL XR [Suspect]
     Indication: SCHIZOPHRENIA
     Route: 048
  4. SEROQUEL XR [Suspect]
     Indication: BIPOLAR DISORDER
     Route: 048
  5. SEROQUEL XR [Suspect]
     Indication: MAJOR DEPRESSION
     Route: 048
  6. SEROQUEL XR [Suspect]
     Indication: SCHIZOPHRENIA
     Route: 048
  7. SEROQUEL XR [Suspect]
     Indication: BIPOLAR DISORDER
     Dosage: 300 milligrams in the morning and 600 milligrams in the evening
     Route: 048
  8. SEROQUEL XR [Suspect]
     Indication: MAJOR DEPRESSION
     Dosage: 300 milligrams in the morning and 600 milligrams in the evening
     Route: 048
  9. SEROQUEL XR [Suspect]
     Indication: SCHIZOPHRENIA
     Dosage: 300 milligrams in the morning and 600 milligrams in the evening
     Route: 048
  10. ZOLOFT [Concomitant]
  11. AMBIEN [Concomitant]

REACTIONS (17)
  - Suicidal ideation [Unknown]
  - Homicidal ideation [Unknown]
  - Drug dose omission [Unknown]
  - Malaise [Unknown]
  - Mass [Unknown]
  - Diarrhoea [Unknown]
  - Headache [Unknown]
  - Feeling of body temperature change [Unknown]
  - Malaise [Unknown]
  - Hyperhidrosis [Unknown]
  - Confusional state [Unknown]
  - Pneumonia [Unknown]
  - Thyroid disorder [Unknown]
  - Adverse event [Unknown]
  - Insomnia [Unknown]
  - Nasopharyngitis [Unknown]
  - Vomiting [Unknown]
